FAERS Safety Report 7943366-8 (Version None)
Quarter: 2011Q4

REPORT INFORMATION
  Report Type: 
  Country: None (occurrence: None)
  Receive Date: 20111128
  Receipt Date: 20111115
  Transmission Date: 20120403
  Serious: Yes (Other)
  Sender: FDA-Public Use
  Company Number: US-BAYER-2011-041412

PATIENT
  Age: 42 Year
  Sex: Female
  Weight: 104.31 kg

DRUGS (6)
  1. LEXAPRO [Concomitant]
     Indication: ANXIETY
     Dosage: UNK
     Dates: start: 20060101
  2. YAZ [Suspect]
     Indication: PREMENSTRUAL SYNDROME
  3. LEXAPRO [Concomitant]
     Indication: DEPRESSION
  4. YAZ [Suspect]
     Indication: CONTRACEPTION
     Dosage: UNK
     Dates: start: 20090601, end: 20090801
  5. KEFLEX [Concomitant]
     Indication: INFECTION
     Dosage: 500 MG, QID
     Dates: start: 20090817
  6. RHINOCORT [Concomitant]

REACTIONS (5)
  - DEEP VEIN THROMBOSIS [None]
  - PAIN [None]
  - ANHEDONIA [None]
  - ANXIETY [None]
  - EMOTIONAL DISTRESS [None]
